FAERS Safety Report 6460807-6 (Version None)
Quarter: 2009Q4

REPORT INFORMATION
  Report Type: 
  Country: None (occurrence: None)
  Receive Date: 20091130
  Receipt Date: 20091118
  Transmission Date: 20100525
  Serious: Yes (Other)
  Sender: FDA-Public Use
  Company Number: DE-PFIZER INC-2009270431

PATIENT
  Age: 47 Year
  Sex: Female

DRUGS (2)
  1. ZELDOX [Suspect]
     Indication: DELUSION
     Dosage: 20 MG, 2X/DAY
     Route: 048
     Dates: start: 20090401
  2. CHLORPROTHIXENE [Concomitant]

REACTIONS (6)
  - ALOPECIA [None]
  - DERMATITIS PSORIASIFORM [None]
  - DIARRHOEA [None]
  - INSOMNIA [None]
  - SPEECH DISORDER [None]
  - SWOLLEN TONGUE [None]
